FAERS Safety Report 23427762 (Version 2)
Quarter: 2024Q1

REPORT INFORMATION
  Report Type: Spontaneous
  Country: JP (occurrence: JP)
  Receive Date: 20240122
  Receipt Date: 20240311
  Transmission Date: 20240409
  Serious: Yes (Death, Hospitalization)
  Sender: FDA-Public Use
  Company Number: JP-TEVA-VS-3136371

PATIENT
  Age: 45 Year
  Sex: Female

DRUGS (16)
  1. HYDROCORTISONE [Suspect]
     Active Substance: HYDROCORTISONE
     Indication: Hormone replacement therapy
     Route: 065
  2. HYDROCORTISONE [Suspect]
     Active Substance: HYDROCORTISONE
     Indication: Hormone replacement therapy
     Route: 065
  3. TEICOPLANIN [Suspect]
     Active Substance: TEICOPLANIN
     Indication: Stenotrophomonas infection
     Route: 065
  4. FLUCONAZOLE [Suspect]
     Active Substance: FLUCONAZOLE
     Indication: Antifungal treatment
     Route: 065
  5. METHOTREXATE [Suspect]
     Active Substance: METHOTREXATE
     Indication: Prophylaxis against graft versus host disease
     Dosage: SHORT TERM
     Route: 065
  6. LEVOTHYROXINE [Concomitant]
     Active Substance: LEVOTHYROXINE\LEVOTHYROXINE SODIUM
     Indication: Hormone replacement therapy
     Route: 065
  7. MICAFUNGIN [Suspect]
     Active Substance: MICAFUNGIN SODIUM
     Indication: Stenotrophomonas infection
     Route: 065
  8. AMPHOTERICIN B [Suspect]
     Active Substance: AMPHOTERICIN B
     Indication: Candida infection
     Route: 065
  9. CYCLOPHOSPHAMIDE [Suspect]
     Active Substance: CYCLOPHOSPHAMIDE
     Indication: Bone marrow conditioning regimen
     Route: 065
  10. CYTARABINE [Suspect]
     Active Substance: CYTARABINE
     Indication: Bone marrow conditioning regimen
     Route: 065
  11. SULFAMETHOXAZOLE\TRIMETHOPRIM [Suspect]
     Active Substance: SULFAMETHOXAZOLE\TRIMETHOPRIM
     Indication: Stenotrophomonas infection
     Route: 065
  12. CEFEPIME [Suspect]
     Active Substance: CEFEPIME HYDROCHLORIDE
     Indication: Stenotrophomonas infection
     Route: 042
  13. LEVOFLOXACIN [Suspect]
     Active Substance: LEVOFLOXACIN
     Indication: Stenotrophomonas infection
     Route: 042
  14. CYCLOSPORINE [Suspect]
     Active Substance: CYCLOSPORINE
     Indication: Prophylaxis against graft versus host disease
     Route: 042
  15. 1-desamino-8-D-arginine vasopressin [Concomitant]
     Indication: Hormone replacement therapy
     Route: 065
  16. MEROPENEM [Suspect]
     Active Substance: MEROPENEM
     Indication: Stenotrophomonas infection
     Route: 065

REACTIONS (13)
  - Diarrhoea [Fatal]
  - Brain abscess [Fatal]
  - Bacteraemia [Fatal]
  - Candida infection [Fatal]
  - Fungaemia [Fatal]
  - Drug ineffective [Fatal]
  - Septic pulmonary embolism [Fatal]
  - Stenotrophomonas infection [Fatal]
  - Neutropenia [Fatal]
  - Cellulitis [Fatal]
  - Adrenal insufficiency [Fatal]
  - Septic shock [Fatal]
  - Skin exfoliation [Fatal]
